FAERS Safety Report 7744898-8 (Version None)
Quarter: 2011Q3

REPORT INFORMATION
  Report Type: 
  Country: None (occurrence: None)
  Receive Date: 20110913
  Receipt Date: 20110907
  Transmission Date: 20111222
  Serious: Yes (Other)
  Sender: FDA-Public Use
  Company Number: NL-AMGEN-NLDSP2011042859

PATIENT
  Age: 45 Year
  Sex: Male
  Weight: 74 kg

DRUGS (2)
  1. ENBREL [Suspect]
     Indication: PSORIATIC ARTHROPATHY
     Dosage: 50 MG, WEEKLY
     Dates: start: 20081001
  2. ENBREL [Suspect]
     Dosage: UNK
     Dates: start: 20101101

REACTIONS (1)
  - HERPES ZOSTER [None]
